FAERS Safety Report 5246531-6 (Version None)
Quarter: 2007Q1

REPORT INFORMATION
  Report Type: 
  Country: None (occurrence: None)
  Receive Date: 20070216
  Receipt Date: 20070214
  Transmission Date: 20070707
  Serious: Yes (Hospitalization)
  Sender: FDA-Public Use
  Company Number: 0701-068

PATIENT
  Age: 11 Month
  Sex: Female
  Weight: 5.8968 kg

DRUGS (2)
  1. ALBUTEROL SULATE [Suspect]
     Dosage: Q1-3H, NEBULIZER
     Dates: start: 20060501
  2. ALBUTEROL SULATE [Suspect]

REACTIONS (4)
  - DYSPEPSIA [None]
  - NAUSEA [None]
  - VOMITING [None]
  - WEIGHT INCREASED [None]
